FAERS Safety Report 4476578-9 (Version None)
Quarter: 2004Q4

REPORT INFORMATION
  Report Type: 
  Country: None (occurrence: None)
  Receive Date: 20041013
  Receipt Date: 20040927
  Transmission Date: 20050328
  Serious: Yes (Death, Hospitalization, Other)
  Sender: FDA-Public Use
  Company Number: USA040978624

PATIENT
  Age: 64 Year
  Sex: Female

DRUGS (6)
  1. GEMZAR [Suspect]
     Indication: LUNG NEOPLASM MALIGNANT
     Dosage: 300 MG/M2
     Dates: start: 20040806, end: 20040827
  2. NORVASC [Concomitant]
  3. ATENOLOL [Concomitant]
  4. HYDROCHLOROTHIAZIDE [Concomitant]
  5. MARINOL [Concomitant]
  6. ALEVE [Concomitant]

REACTIONS (8)
  - ALCOHOL USE [None]
  - ENCEPHALOPATHY [None]
  - HAEMOLYSIS [None]
  - HEPATORENAL FAILURE [None]
  - HEPATORENAL SYNDROME [None]
  - HEPATOTOXICITY [None]
  - HYPERTENSION [None]
  - RESPIRATORY FAILURE [None]
